FAERS Safety Report 12233174 (Version 1)
Quarter: 2016Q2

REPORT INFORMATION
  Report Type: Report from Study
  Country: ET (occurrence: ET)
  Receive Date: 20160404
  Receipt Date: 20160404
  Transmission Date: 20160815
  Serious: Yes (Death, Other)
  Sender: FDA-Public Use
  Company Number: ET-ROCHE-1735421

PATIENT

DRUGS (9)
  1. TRAMADOL. [Interacting]
     Active Substance: TRAMADOL
     Indication: INFECTION
     Route: 065
  2. SPIRONOLACTONE. [Interacting]
     Active Substance: SPIRONOLACTONE
     Indication: INFECTION
     Route: 065
  3. VANCOMYCINE [Interacting]
     Active Substance: VANCOMYCIN
     Indication: INFECTION
     Route: 065
  4. CEFTRIAXONE. [Suspect]
     Active Substance: CEFTRIAXONE
     Indication: INFECTION
     Route: 065
  5. AZITHROMYCINE [Interacting]
     Active Substance: AZITHROMYCIN DIHYDRATE
     Indication: INFECTION
     Route: 065
  6. METRONIDAZOLE. [Interacting]
     Active Substance: METRONIDAZOLE
     Indication: INFECTION
     Route: 065
  7. FUROSEMIDE. [Interacting]
     Active Substance: FUROSEMIDE
     Indication: INFECTION
     Route: 065
  8. HEPARIN [Interacting]
     Active Substance: HEPARIN SODIUM
     Indication: INFECTION
     Route: 065
  9. CIMETIDINE [Interacting]
     Active Substance: CIMETIDINE
     Indication: INFECTION
     Route: 065

REACTIONS (3)
  - Drug interaction [Fatal]
  - International normalised ratio increased [Unknown]
  - Haemorrhage [Fatal]
